FAERS Safety Report 9922572 (Version 2)
Quarter: 2014Q1

REPORT INFORMATION
  Report Type: Report from Study
  Country: US (occurrence: US)
  Receive Date: 20140225
  Receipt Date: 20140225
  Transmission Date: 20141002
  Serious: No
  Sender: FDA-Public Use
  Company Number: US-ABBVIE-13P-163-1138576-00

PATIENT
  Age: 53 Year
  Sex: Female

DRUGS (5)
  1. HUMIRA [Suspect]
     Indication: CROHN^S DISEASE
     Dosage: LOADING DOSE
     Dates: start: 20130814
  2. SYNTHROID [Concomitant]
     Indication: HYPOTHYROIDISM
  3. CLARITIN [Concomitant]
     Indication: SEASONAL ALLERGY
  4. LIALDA [Concomitant]
     Indication: COLITIS ULCERATIVE
  5. PILOCARPINE EYE DROPS [Concomitant]
     Indication: HEADACHE

REACTIONS (4)
  - Body temperature increased [Recovered/Resolved]
  - Pain in extremity [Recovered/Resolved]
  - Arthralgia [Recovered/Resolved]
  - Wound infection [Unknown]
